FAERS Safety Report 8735932 (Version 4)
Quarter: 2012Q4

REPORT INFORMATION
  Report Type: 
  Country: BE (occurrence: BE)
  Receive Date: 20120822
  Receipt Date: 20121017
  Transmission Date: 20130627
  Serious: Yes (Hospitalization, Disabling)
  Sender: FDA-Public Use
  Company Number: BE-PFIZER INC-2012203632

PATIENT
  Age: 60 Year
  Sex: Male

DRUGS (8)
  1. CORDARONE [Suspect]
     Indication: ATRIAL FIBRILLATION
     Dosage: 5 DF, weekly
     Route: 065
     Dates: start: 2010
  2. CORDARONE [Suspect]
     Dosage: 4 DF, weekly
     Route: 065
     Dates: start: 201201
  3. CORDARONE [Suspect]
     Dosage: 3 DF, weekly
     Route: 065
     Dates: start: 201202
  4. CORDARONE [Suspect]
     Dosage: 2 DF, weekly
     Route: 065
     Dates: start: 201203
  5. CORDARONE [Suspect]
     Dosage: 1 DF, weekly
     Route: 048
     Dates: start: 201204, end: 20120430
  6. CORDARONE [Suspect]
     Dosage: UNK
     Dates: end: 201205
  7. CORTISONE [Concomitant]
     Indication: CEREBELLAR ATAXIA
     Dosage: UNK
     Dates: start: 201111
  8. STRUMAZOL [Concomitant]
     Indication: HEPATITIS CHOLESTATIC
     Dosage: UNK

REACTIONS (2)
  - Cerebellar ataxia [Not Recovered/Not Resolved]
  - Hyperthyroidism [Recovering/Resolving]
